FAERS Safety Report 10069969 (Version 1)
Quarter: 2014Q2

REPORT INFORMATION
  Report Type: Spontaneous
  Country: KR (occurrence: KR)
  Receive Date: 20140410
  Receipt Date: 20140410
  Transmission Date: 20141212
  Serious: Yes (Death, Other)
  Sender: FDA-Public Use
  Company Number: KR-OTSUKA-JP-2014-12983

PATIENT
  Sex: 0

DRUGS (4)
  1. PLETAAL [Suspect]
     Indication: CORONARY ARTERY RESTENOSIS
     Dosage: UNK
     Route: 048
  2. PLETAAL [Suspect]
     Indication: OFF LABEL USE
  3. ASPIRIN [Concomitant]
     Dosage: UNK
     Route: 065
  4. CLOPIDOGREL SULFATE [Concomitant]
     Dosage: UNK
     Route: 048

REACTIONS (6)
  - Death [Fatal]
  - Thrombosis in device [Unknown]
  - Ischaemia [Unknown]
  - Haemorrhage [Unknown]
  - Myocardial infarction [Unknown]
  - Off label use [Unknown]
